FAERS Safety Report 4643354-3 (Version None)
Quarter: 2005Q3

REPORT INFORMATION
  Report Type: 
  Country: None (occurrence: None)
  Receive Date: 20050422
  Receipt Date: 20050411
  Transmission Date: 20060218
  Serious: Yes (Hospitalization, Other)
  Sender: FDA-Public Use
  Company Number: 04-000574

PATIENT
  Age: 52 Year
  Sex: Female
  Weight: 78.5 kg

DRUGS (9)
  1. FEMRING [Suspect]
     Indication: MENOPAUSAL SYMPTOMS
     Dosage: SEE IMAGE, VAGINAL
     Route: 067
     Dates: start: 20040428, end: 20040515
  2. FEMRING [Suspect]
     Indication: MENOPAUSAL SYMPTOMS
     Dosage: SEE IMAGE, VAGINAL
     Route: 067
     Dates: start: 20040530
  3. VIOXX [Concomitant]
  4. PREDNISONE [Concomitant]
  5. REMICADE [Concomitant]
  6. PREVACID [Concomitant]
  7. ZANTAC [Concomitant]
  8. IMITREX [Concomitant]
  9. BEXTRA [Concomitant]

REACTIONS (9)
  - DEVICE MIGRATION [None]
  - DIARRHOEA [None]
  - FALL [None]
  - FOOT FRACTURE [None]
  - MIGRAINE [None]
  - MOTION SICKNESS [None]
  - POST PROCEDURAL COMPLICATION [None]
  - PULMONARY THROMBOSIS [None]
  - THROMBOSIS [None]
